FAERS Safety Report 9527698 (Version 1)
Quarter: 2013Q1

REPORT INFORMATION
  Report Type: Spontaneous
  Country: US (occurrence: None)
  Receive Date: 20130314
  Receipt Date: 20130314
  Transmission Date: 20140127
  Serious: No
  Sender: FDA-Public Use
  Company Number: 1302USA004853

PATIENT
  Age: 55 Year
  Sex: Female

DRUGS (3)
  1. PEGINTRON [Suspect]
     Indication: HEPATITIS C
     Dosage: UNK
     Dates: start: 20130125
  2. RIBAVIRIN [Suspect]
     Indication: HEPATITIS C
     Dosage: UNK, ORAL
     Route: 048
     Dates: start: 20130125
  3. VICTRELIS [Suspect]
     Indication: HEPATITIS C
     Dosage: UNK, ORAL
     Route: 048

REACTIONS (4)
  - Injection site reaction [None]
  - Pain [None]
  - Nervousness [None]
  - Cough [None]
